FAERS Safety Report 11428399 (Version 1)
Quarter: 2015Q3

REPORT INFORMATION
  Report Type: Spontaneous
  Country: US (occurrence: US)
  Receive Date: 20150828
  Receipt Date: 20150828
  Transmission Date: 20151125
  Serious: No
  Sender: FDA-Public Use
  Company Number: US-ROCHE-1216179

PATIENT
  Sex: Female
  Weight: 90.8 kg

DRUGS (7)
  1. TELAPREVIR [Suspect]
     Active Substance: TELAPREVIR
     Indication: CHRONIC HEPATITIS C
     Route: 065
     Dates: start: 20130408
  2. RIBASPHERE [Suspect]
     Active Substance: RIBAVIRIN
     Dosage: DIVIDED DOSE 200/400
     Route: 065
  3. PRILOSEC [Concomitant]
     Active Substance: OMEPRAZOLE MAGNESIUM
  4. PEGASYS [Suspect]
     Active Substance: PEGINTERFERON ALFA-2A
     Indication: CHRONIC HEPATITIS C
     Route: 058
     Dates: start: 20130408
  5. RIBASPHERE [Suspect]
     Active Substance: RIBAVIRIN
     Indication: CHRONIC HEPATITIS C
     Dosage: 600/800 DIVIDED DOSE
     Route: 065
     Dates: start: 20130408
  6. RIBASPHERE [Suspect]
     Active Substance: RIBAVIRIN
     Dosage: DIVIDED DOSE 200/400
     Route: 065
  7. RIBASPHERE [Suspect]
     Active Substance: RIBAVIRIN
     Dosage: 200/200
     Route: 065

REACTIONS (18)
  - Nausea [Unknown]
  - Dyspnoea [Unknown]
  - Vision blurred [Unknown]
  - Otorrhoea [Unknown]
  - Fluid retention [Recovered/Resolved]
  - Hypoaesthesia [Unknown]
  - Injection site mass [Unknown]
  - Head discomfort [Unknown]
  - Drug dose omission [Unknown]
  - Viral load increased [Unknown]
  - Insomnia [Unknown]
  - Dizziness [Unknown]
  - Anaemia [Unknown]
  - Ear pruritus [Unknown]
  - Paraesthesia [Unknown]
  - Hangover [Unknown]
  - Neutrophil count decreased [Unknown]
  - Joint swelling [Recovered/Resolved]
